FAERS Safety Report 6983615-6 (Version None)
Quarter: 2010Q3

REPORT INFORMATION
  Report Type: 
  Country: None (occurrence: None)
  Receive Date: 20100914
  Receipt Date: 20081013
  Transmission Date: 20110219
  Serious: No
  Sender: FDA-Public Use
  Company Number: US-WYE-H06338508

PATIENT
  Sex: Male
  Weight: 90.8 kg

DRUGS (4)
  1. ADVIL LIQUI-GELS [Suspect]
     Indication: ARTHRITIS
     Route: 048
     Dates: end: 20080101
  2. CELEBREX [Suspect]
     Indication: ARTHRITIS
     Route: 065
     Dates: end: 20080101
  3. HERBAL PREPARATION [Concomitant]
  4. CHANTIX [Suspect]
     Indication: EX-TOBACCO USER
     Route: 048
     Dates: start: 20080717, end: 20080101

REACTIONS (5)
  - ABNORMAL DREAMS [None]
  - DIARRHOEA [None]
  - HAEMATOCHEZIA [None]
  - RECTAL HAEMORRHAGE [None]
  - WEIGHT DECREASED [None]
